FAERS Safety Report 6487238-7 (Version None)
Quarter: 2009Q4

REPORT INFORMATION
  Report Type: 
  Country: None (occurrence: None)
  Receive Date: 20091210
  Receipt Date: 20090811
  Transmission Date: 20100525
  Serious: No
  Sender: FDA-Public Use
  Company Number: US-AMGEN-KDL359670

PATIENT
  Sex: Female
  Weight: 104.4 kg

DRUGS (1)
  1. ENBREL [Suspect]
     Indication: PSORIASIS
     Route: 058
     Dates: start: 20090715

REACTIONS (4)
  - DRY SKIN [None]
  - HYPERSENSITIVITY [None]
  - SKIN SWELLING [None]
  - SKIN WRINKLING [None]
